FAERS Safety Report 11071413 (Version 1)
Quarter: 2015Q2

REPORT INFORMATION
  Report Type: Spontaneous
  Country: US (occurrence: None)
  Receive Date: 20150427
  Receipt Date: 20150427
  Transmission Date: 20150821
  Serious: Yes (Other)
  Sender: FDA-Public Use
  Company Number: None

PATIENT
  Age: 69 Year
  Sex: Male

DRUGS (2)
  1. LOMUSTINE 10MG NEXTSOURCE BIOTECH [Suspect]
     Active Substance: LOMUSTINE
  2. LOMUSTINE. [Suspect]
     Active Substance: LOMUSTINE
     Indication: BRAIN NEOPLASM MALIGNANT
     Dosage: ONCE EVERY 6 WEEKS
     Route: 048

REACTIONS (3)
  - Treatment failure [None]
  - Brain neoplasm malignant [None]
  - Malignant neoplasm progression [None]

NARRATIVE: CASE EVENT DATE: 20150424
